FAERS Safety Report 4317533-9 (Version None)
Quarter: 2004Q1

REPORT INFORMATION
  Report Type: 
  Country: None (occurrence: None)
  Receive Date: 20040312
  Receipt Date: 20040223
  Transmission Date: 20041129
  Serious: Yes (Death)
  Sender: FDA-Public Use
  Company Number: USA-2004-0013319

PATIENT
  Age: 49 Year
  Sex: Female
  Weight: 74.4 kg

DRUGS (6)
  1. OXYCODONE HCL [Suspect]
  2. LIDOCAINE [Suspect]
  3. CITALOPRAM(CITALOPRAM) [Suspect]
  4. HALOPERIDOL [Suspect]
  5. TRAZODONE HCL [Suspect]
  6. BUSPIRON(HYOSCINE BUTYLBROMIDE, METAMIZOLE SODIUM MONOHYDRATE) [Suspect]

REACTIONS (13)
  - AORTIC ATHEROSCLEROSIS [None]
  - BLOOD CHLORIDE DECREASED [None]
  - BLOOD GLUCOSE DECREASED [None]
  - BLOOD POTASSIUM INCREASED [None]
  - BLOOD SODIUM INCREASED [None]
  - BLOOD UREA INCREASED [None]
  - COMA [None]
  - CORONARY ARTERY DISEASE [None]
  - HYPERTENSION [None]
  - OVERDOSE [None]
  - PULMONARY CONGESTION [None]
  - RENAL CYST [None]
  - SKIN INJURY [None]
